FAERS Safety Report 6684472-8 (Version None)
Quarter: 2010Q2

REPORT INFORMATION
  Report Type: 
  Country: None (occurrence: None)
  Receive Date: 20100416
  Receipt Date: 20100409
  Transmission Date: 20101027
  Serious: Yes (Hospitalization)
  Sender: FDA-Public Use
  Company Number: PHHO2007DE08854

PATIENT
  Sex: Female
  Weight: 49.7 kg

DRUGS (13)
  1. CERTICAN [Suspect]
     Indication: LIVER TRANSPLANT
     Dosage: 3.5 MG DAILY DOSE
     Route: 048
     Dates: start: 20061204, end: 20070607
  2. CERTICAN [Suspect]
     Route: 048
     Dates: start: 20070701
  3. ANTIBIOTICS [Concomitant]
  4. PROGRAF [Concomitant]
     Indication: LIVER TRANSPLANT
     Dosage: 1.5 MG / DAY
     Route: 048
     Dates: start: 20070530
  5. PROGRAF [Concomitant]
     Dosage: 3 MG / DAY
     Route: 048
     Dates: start: 20070531
  6. IMIPENEM [Concomitant]
  7. GENTAMICIN [Concomitant]
  8. PANTOPRAZOLE [Concomitant]
  9. METOPROLOL SUCCINATE [Concomitant]
  10. AMLODIPINE [Concomitant]
  11. TORSEMIDE [Concomitant]
  12. RAMIPRIL [Concomitant]
  13. FLUVASTATIN [Concomitant]

REACTIONS (11)
  - ASTHENIA [None]
  - BIOPSY BILE DUCT ABNORMAL [None]
  - COMPLICATIONS OF TRANSPLANTED LIVER [None]
  - HEPATIC ENZYME INCREASED [None]
  - HEPATIC FAILURE [None]
  - HEPATIC NECROSIS [None]
  - HEPATOTOXICITY [None]
  - JAUNDICE [None]
  - LIVER TRANSPLANT REJECTION [None]
  - NAUSEA [None]
  - PORTAL VEIN PHLEBITIS [None]
